FAERS Safety Report 17822736 (Version 2)
Quarter: 2020Q2

REPORT INFORMATION
  Report Type: Report from Study
  Country: CO (occurrence: CO)
  Receive Date: 20200526
  Receipt Date: 20200612
  Transmission Date: 20200714
  Serious: Yes (Hospitalization)
  Sender: FDA-Public Use
  Company Number: CO-BIOGEN-2020BI00877400

PATIENT
  Age: 20 Year
  Sex: Female
  Weight: 90 kg

DRUGS (2)
  1. TYSABRI [Suspect]
     Active Substance: NATALIZUMAB
     Indication: MULTIPLE SCLEROSIS
     Dosage: INFUSED OVER ONE HOUR
     Route: 042
     Dates: start: 20190509
  2. VITAMIN D [Concomitant]
     Active Substance: VITAMIN D NOS
     Indication: HYPOAESTHESIA
     Route: 048
     Dates: start: 201907

REACTIONS (2)
  - Urinary tract infection [Recovered/Resolved]
  - Lymph gland infection [Recovered/Resolved]

NARRATIVE: CASE EVENT DATE: 20191029
